FAERS Safety Report 9268584 (Version 1)
Quarter: 2013Q2

REPORT INFORMATION
  Report Type: Spontaneous
  Country: US (occurrence: US)
  Receive Date: 20130502
  Receipt Date: 20130502
  Transmission Date: 20140414
  Serious: Yes (Disabling)
  Sender: FDA-Public Use
  Company Number: CHPA2013US007472

PATIENT
  Sex: Female

DRUGS (4)
  1. PREVACID [Suspect]
     Indication: DYSPEPSIA
     Dosage: 15 MG, UNK
     Route: 048
  2. PROTONIX ^PHARMACIA^ [Suspect]
  3. ALENDRONATE SODIUM [Concomitant]
     Dosage: UNK
     Dates: end: 20130213
  4. ANTIHYPERTENSIVE DRUGS [Concomitant]

REACTIONS (4)
  - Activities of daily living impaired [Unknown]
  - Feeling abnormal [Unknown]
  - Off label use [Unknown]
  - Drug ineffective for unapproved indication [Unknown]
